FAERS Safety Report 18858416 (Version 1)
Quarter: 2021Q1

REPORT INFORMATION
  Report Type: Spontaneous
  Country: US (occurrence: US)
  Receive Date: 20210208
  Receipt Date: 20210208
  Transmission Date: 20210420
  Serious: Yes (Hospitalization, Other)
  Sender: FDA-Public Use
  Company Number: US-PURACAP-US-2021EPCLIT00079

PATIENT
  Age: 55 Year
  Sex: Female

DRUGS (1)
  1. ERGOCALCIFEROL. [Suspect]
     Active Substance: ERGOCALCIFEROL
     Indication: PRODUCT USED FOR UNKNOWN INDICATION
     Dosage: 50000 UNITS
     Route: 065

REACTIONS (4)
  - Acute kidney injury [Recovering/Resolving]
  - Incorrect dose administered [Unknown]
  - Hypercalcaemia [Recovering/Resolving]
  - Hypervitaminosis D [Recovering/Resolving]
